FAERS Safety Report 25106791 (Version 3)
Quarter: 2025Q2

REPORT INFORMATION
  Report Type: Spontaneous
  Country: GB (occurrence: GB)
  Receive Date: 20250321
  Receipt Date: 20250625
  Transmission Date: 20250717
  Serious: Yes (Disabling, Other)
  Sender: SANOFI AVENTIS
  Company Number: GB-SA-2025SA080145

PATIENT
  Age: 44 Year
  Sex: Female

DRUGS (1)
  1. DUPILUMAB [Suspect]
     Active Substance: DUPILUMAB
     Indication: Dermatitis atopic
     Dosage: 300 MG, QOW
     Route: 058
     Dates: start: 20241115, end: 20250313

REACTIONS (15)
  - Myelopathy [Recovering/Resolving]
  - Cervical cord compression [Recovering/Resolving]
  - Neurological symptom [Recovering/Resolving]
  - Spondylectomy [Unknown]
  - Spinal fusion surgery [Unknown]
  - Dyskinesia [Unknown]
  - Paraesthesia [Unknown]
  - Hypoaesthesia [Unknown]
  - Condition aggravated [Unknown]
  - Balance disorder [Unknown]
  - Fall [Unknown]
  - Fine motor skill dysfunction [Unknown]
  - Grip strength decreased [Unknown]
  - Electric shock sensation [Unknown]
  - Allodynia [Unknown]

NARRATIVE: CASE EVENT DATE: 20241215
